FAERS Safety Report 9097884 (Version 2)
Quarter: 2013Q1

REPORT INFORMATION
  Report Type: Spontaneous
  Country: US (occurrence: US)
  Receive Date: 20130212
  Receipt Date: 20130225
  Transmission Date: 20140127
  Serious: Yes (Death, Other)
  Sender: FDA-Public Use
  Company Number: US-BRISTOL-MYERS SQUIBB COMPANY-17366139

PATIENT
  Age: 49 Year
  Sex: Male
  Weight: 89 kg

DRUGS (1)
  1. METFORMIN HCL TABS [Suspect]
     Indication: TYPE 2 DIABETES MELLITUS
     Dosage: TAKEN AS CONMED FRO 2YRS?METFORMIN TABS
     Route: 048
     Dates: start: 20100414, end: 2010

REACTIONS (2)
  - Myocardial infarction [Fatal]
  - Emphysema [Unknown]
